FAERS Safety Report 19188080 (Version 2)
Quarter: 2021Q2

REPORT INFORMATION
  Report Type: Other
  Country: CL (occurrence: CL)
  Receive Date: 20210428
  Receipt Date: 20210517
  Transmission Date: 20210717
  Serious: Yes (Hospitalization)
  Sender: FDA-Public Use
  Company Number: CL-ROCHE-2814480

PATIENT
  Age: 73 Year
  Weight: 96 kg

DRUGS (2)
  1. BEVACIZUMAB. [Suspect]
     Active Substance: BEVACIZUMAB
     Indication: HEPATOCELLULAR CARCINOMA
     Dosage: DOSE AND FREQUENCY WERE NOT REPORTED?23/MAR/2021
     Route: 065
  2. ATEZOLIZUMAB. [Suspect]
     Active Substance: ATEZOLIZUMAB
     Indication: HEPATOCELLULAR CARCINOMA
     Dosage: DOSE AND FREQUENCY WERE NOT REPORTED?23/MAR/2021
     Route: 042

REACTIONS (9)
  - Cortisol decreased [Unknown]
  - Hypophysitis [Unknown]
  - Thyroxine free decreased [Unknown]
  - Blood thyroid stimulating hormone decreased [Unknown]
  - Ill-defined disorder [Unknown]
  - Hyponatraemia [Recovered/Resolved]
  - Headache [Unknown]
  - Hypothyroidism [Unknown]
  - Fatigue [Unknown]

NARRATIVE: CASE EVENT DATE: 20210404
